FAERS Safety Report 19545762 (Version 5)
Quarter: 2021Q4

REPORT INFORMATION
  Report Type: Spontaneous
  Country: JP (occurrence: JP)
  Receive Date: 20210714
  Receipt Date: 20211220
  Transmission Date: 20220303
  Serious: Yes (Other)
  Sender: FDA-Public Use
  Company Number: NVSJ2020JP014592

PATIENT
  Age: 58 Year
  Sex: Female

DRUGS (1)
  1. BEOVU [Suspect]
     Active Substance: BROLUCIZUMAB-DBLL
     Indication: Neovascular age-related macular degeneration
     Dosage: 6 MG
     Route: 031
     Dates: start: 20201113, end: 20201113

REACTIONS (6)
  - Blindness transient [Recovered/Resolved]
  - Keratic precipitates [Unknown]
  - Iritis [Recovering/Resolving]
  - Vitreous floaters [Not Recovered/Not Resolved]
  - Vitreous opacities [Unknown]
  - Papillophlebitis [Recovered/Resolved]

NARRATIVE: CASE EVENT DATE: 20201120
